FAERS Safety Report 21498435 (Version 2)
Quarter: 2023Q4

REPORT INFORMATION
  Report Type: Spontaneous
  Country: US (occurrence: US)
  Receive Date: 20221024
  Receipt Date: 20231010
  Transmission Date: 20240110
  Serious: No
  Sender: FDA-Public Use
  Company Number: US-CELLTRION INC.-2022US009326

PATIENT

DRUGS (2)
  1. INFLECTRA [Suspect]
     Active Substance: INFLIXIMAB-DYYB
     Indication: Ankylosing spondylitis
     Dosage: 10MG AT 70 10MG UNITS INFUSION NORMAL SALINE SOLUTION 250CC OVER 1 HOUR DURATION
     Route: 065
  2. REMICADE [Concomitant]
     Active Substance: INFLIXIMAB
     Indication: Inflammation
     Dosage: UNK
     Dates: start: 2008

REACTIONS (5)
  - Insurance issue [Unknown]
  - Impaired work ability [Unknown]
  - Product substitution issue [Unknown]
  - Drug ineffective [Unknown]
  - Underdose [Unknown]
